FAERS Safety Report 9131723 (Version 1)
Quarter: 2013Q1

REPORT INFORMATION
  Report Type: Report from Study
  Country: US (occurrence: US)
  Receive Date: 20130301
  Receipt Date: 20130301
  Transmission Date: 20140127
  Serious: No
  Sender: FDA-Public Use
  Company Number: US-MYLANLABS-2012S1012397

PATIENT
  Age: 14 Year
  Sex: Female

DRUGS (1)
  1. AMNESTEEM CAPSULES [Suspect]
     Dates: end: 201203

REACTIONS (3)
  - Sinusitis [Recovered/Resolved]
  - Liver function test abnormal [Recovered/Resolved]
  - White blood cell count increased [Recovered/Resolved]
